FAERS Safety Report 10067890 (Version 1)
Quarter: 2014Q2

REPORT INFORMATION
  Report Type: Spontaneous
  Country: KR (occurrence: KR)
  Receive Date: 20140409
  Receipt Date: 20140409
  Transmission Date: 20141212
  Serious: Yes (Other)
  Sender: FDA-Public Use
  Company Number: KR-BAYER-2014-050380

PATIENT
  Age: 36 Year
  Sex: Female

DRUGS (6)
  1. CIPROFLOXACIN [Suspect]
     Indication: PSEUDOMONAL BACTERAEMIA
     Dosage: 400 MG, BID
     Route: 042
  2. CIPROFLOXACIN [Suspect]
     Indication: PSEUDOMONAL SEPSIS
  3. CEFEPIME [Concomitant]
     Indication: FEBRILE NEUTROPENIA
     Dosage: UNK
  4. MEROPENEM [Concomitant]
     Indication: CELLULITIS
  5. MEROPENEM [Concomitant]
     Indication: PSEUDOMONAS INFECTION
  6. COLISTIN [Concomitant]
     Indication: PSEUDOMONAL SEPSIS
     Dosage: 150 MG, BID
     Route: 042

REACTIONS (4)
  - Pathogen resistance [None]
  - Treatment failure [None]
  - Pseudomonal bacteraemia [Recovering/Resolving]
  - Pseudomonal sepsis [Recovering/Resolving]
